FAERS Safety Report 11061306 (Version 1)
Quarter: 2015Q2

REPORT INFORMATION
  Report Type: Spontaneous
  Country: US (occurrence: US)
  Receive Date: 20150424
  Receipt Date: 20150424
  Transmission Date: 20150821
  Serious: No
  Sender: FDA-Public Use
  Company Number: US-ASTRAZENECA-2015SE37943

PATIENT
  Age: 16343 Day
  Sex: Male
  Weight: 89 kg

DRUGS (8)
  1. TUMS [Suspect]
     Active Substance: CALCIUM CARBONATE
     Route: 065
  2. NEXIUM 24HR [Suspect]
     Active Substance: ESOMEPRAZOLE MAGNESIUM
     Indication: GASTROOESOPHAGEAL REFLUX DISEASE
     Dosage: 22.3 MG, CAPSULES, ONCE DAILY,
     Route: 048
     Dates: start: 20150411, end: 20150414
  3. OMEPRAZOLE. [Suspect]
     Active Substance: OMEPRAZOLE
     Route: 048
  4. NEXIUM 24HR [Suspect]
     Active Substance: ESOMEPRAZOLE MAGNESIUM
     Indication: FLATULENCE
     Dosage: 22.3 MG, CAPSULES, ONCE DAILY,
     Route: 048
     Dates: start: 20150411, end: 20150414
  5. NEXIUM 24HR [Suspect]
     Active Substance: ESOMEPRAZOLE MAGNESIUM
     Indication: ABDOMINAL DISTENSION
     Dosage: 22.3 MG, CAPSULES, ONCE DAILY,
     Route: 048
     Dates: start: 20150411, end: 20150414
  6. NEXIUM 24HR [Suspect]
     Active Substance: ESOMEPRAZOLE MAGNESIUM
     Indication: GASTROOESOPHAGEAL REFLUX DISEASE
     Dosage: 20MG ONE TABLET
     Route: 048
  7. NEXIUM 24HR [Suspect]
     Active Substance: ESOMEPRAZOLE MAGNESIUM
     Indication: FLATULENCE
     Dosage: 20MG ONE TABLET
     Route: 048
  8. NEXIUM 24HR [Suspect]
     Active Substance: ESOMEPRAZOLE MAGNESIUM
     Indication: ABDOMINAL DISTENSION
     Dosage: 20MG ONE TABLET
     Route: 048

REACTIONS (9)
  - Chest pain [Recovering/Resolving]
  - Tracheal pain [Recovering/Resolving]
  - Adverse event [Unknown]
  - Hyperhidrosis [Recovering/Resolving]
  - Heart rate increased [Recovering/Resolving]
  - Mass [Recovering/Resolving]
  - Drug ineffective [Unknown]
  - Musculoskeletal pain [Recovering/Resolving]
  - Cardiomegaly [Recovering/Resolving]

NARRATIVE: CASE EVENT DATE: 20150414
